FAERS Safety Report 24968383 (Version 1)
Quarter: 2025Q1

REPORT INFORMATION
  Report Type: Report from Study
  Country: GB (occurrence: GB)
  Receive Date: 20250214
  Receipt Date: 20250214
  Transmission Date: 20250408
  Serious: Yes (Other)
  Sender: KYOWA
  Company Number: GB-KYOWAKIRIN-2023BKK007476

PATIENT

DRUGS (1)
  1. BUROSUMAB [Suspect]
     Active Substance: BUROSUMAB
     Indication: Hereditary hypophosphataemic rickets
     Route: 065

REACTIONS (1)
  - Nephrocalcinosis [Not Recovered/Not Resolved]

NARRATIVE: CASE EVENT DATE: 20210929
